FAERS Safety Report 8229193-5 (Version None)
Quarter: 2012Q1

REPORT INFORMATION
  Report Type: 
  Country: None (occurrence: None)
  Receive Date: 20120322
  Receipt Date: 20120321
  Transmission Date: 20120608
  Serious: Yes (Death, Hospitalization)
  Sender: FDA-Public Use
  Company Number: CN-ROCHE-1051115

PATIENT
  Sex: Male
  Weight: 58 kg

DRUGS (2)
  1. CYCLOSPORINE [Concomitant]
     Indication: RENAL TRANSPLANT
     Route: 048
     Dates: start: 20070301
  2. MYCOPHENOLATE MOFETIL (CELLCEPT) [Suspect]
     Indication: RENAL TRANSPLANT
     Route: 048
     Dates: start: 20070301

REACTIONS (2)
  - TRANSPLANT REJECTION [None]
  - RENAL FAILURE [None]
